FAERS Safety Report 7228151-7 (Version None)
Quarter: 2011Q1

REPORT INFORMATION
  Report Type: 
  Country: None (occurrence: None)
  Receive Date: 20110112
  Receipt Date: 20110112
  Transmission Date: 20110831
  Serious: Yes (Life-Threatening, Hospitalization)
  Sender: FDA-Public Use
  Company Number: None

PATIENT
  Age: 51 Year
  Sex: Male
  Weight: 83.9154 kg

DRUGS (1)
  1. DILANTIN [Suspect]
     Indication: CONVULSION
     Dosage: 300 MG QHS PO
     Route: 048
     Dates: start: 20101215, end: 20101216

REACTIONS (2)
  - CONVULSION [None]
  - ANTICONVULSANT DRUG LEVEL DECREASED [None]
